FAERS Safety Report 19272391 (Version 2)
Quarter: 2021Q3

REPORT INFORMATION
  Report Type: Report from Study
  Country: CA (occurrence: CA)
  Receive Date: 20210518
  Receipt Date: 20210909
  Transmission Date: 20211014
  Serious: Yes (Death)
  Sender: FDA-Public Use
  Company Number: NVSC2021CA047695

PATIENT
  Sex: Female

DRUGS (3)
  1. PIQRAY [Suspect]
     Active Substance: ALPELISIB
     Indication: HORMONE RECEPTOR POSITIVE BREAST CANCER
     Dosage: 300 MG, QD
     Route: 048
     Dates: start: 20210126
  2. PIQRAY [Suspect]
     Active Substance: ALPELISIB
     Dosage: 150 MG (HALF A DOSE)
     Route: 048
     Dates: start: 20210224
  3. PIQRAY [Suspect]
     Active Substance: ALPELISIB
     Dosage: UNK
     Route: 048
     Dates: start: 20210213

REACTIONS (2)
  - Death [Fatal]
  - Rash [Unknown]
